FAERS Safety Report 18268471 (Version 2)
Quarter: 2020Q4

REPORT INFORMATION
  Report Type: Spontaneous
  Country: BR (occurrence: BR)
  Receive Date: 20200915
  Receipt Date: 20201029
  Transmission Date: 20210113
  Serious: Yes (Other)
  Sender: FDA-Public Use
  Company Number: BR-SHIRE-BR202029227

PATIENT

DRUGS (2)
  1. VENVANSE [Suspect]
     Active Substance: LISDEXAMFETAMINE DIMESYLATE
     Indication: ATTENTION DEFICIT HYPERACTIVITY DISORDER
     Dosage: 70 MILLIGRAM, 1X/DAY:QD
     Route: 065
  2. DONAREN [Suspect]
     Active Substance: TRAZODONE HYDROCHLORIDE
     Indication: PRODUCT USED FOR UNKNOWN INDICATION
     Dosage: 50 MILLIGRAM, 1X/DAY:QD
     Route: 065

REACTIONS (5)
  - Incorrect dose administered [Unknown]
  - Drug ineffective [Unknown]
  - Asthenia [Unknown]
  - Suicidal ideation [Unknown]
  - Anxiety [Unknown]
